FAERS Safety Report 5907015-2 (Version None)
Quarter: 2008Q4

REPORT INFORMATION
  Report Type: 
  Country: None (occurrence: None)
  Receive Date: 20081002
  Receipt Date: 20081002
  Transmission Date: 20090506
  Serious: Yes (Other)
  Sender: FDA-Public Use
  Company Number: None

PATIENT
  Age: 5 Year
  Sex: Female
  Weight: 23.587 kg

DRUGS (1)
  1. TYLENOL PLUS FLU FOR CHILDREN PHENYLEPHRINE 2.5MG/ 5ML TYLENOL [Suspect]
     Indication: NASOPHARYNGITIS
     Dosage: 2 TSP 1X/4HRS. PO, 1 DOSE
     Route: 048
     Dates: start: 20080930, end: 20080930

REACTIONS (3)
  - BLOOD PRESSURE INCREASED [None]
  - CHEST PAIN [None]
  - HEART RATE INCREASED [None]
